FAERS Safety Report 23722476 (Version 2)
Quarter: 2024Q3

REPORT INFORMATION
  Report Type: Spontaneous
  Country: JP (occurrence: JP)
  Receive Date: 20240409
  Receipt Date: 20240909
  Transmission Date: 20241017
  Serious: Yes (Hospitalization)
  Sender: EISAI
  Company Number: JP-Eisai-202400098_LEN-HCC_P_1

PATIENT
  Age: 52 Year
  Sex: Male
  Weight: 81 kg

DRUGS (6)
  1. LENVIMA [Suspect]
     Active Substance: LENVATINIB
     Indication: Hepatocellular carcinoma
     Dosage: AFTER BREAKFAST
     Route: 048
     Dates: start: 20231114, end: 20231118
  2. LENVIMA [Suspect]
     Active Substance: LENVATINIB
     Dosage: AFTER BREAKFAST
     Route: 048
     Dates: start: 20231124
  3. NOVORAPID [Concomitant]
     Active Substance: INSULIN ASPART
     Indication: Product used for unknown indication
     Dosage: 14 UNITS IN THE MORNING, 14 UNITS AT NOON, 16 UNITS IN THE EVENING
     Route: 065
     Dates: start: 202302
  4. MEROPENEM [Concomitant]
     Active Substance: MEROPENEM
     Indication: Product used for unknown indication
     Dosage: 2 BOTTLE
     Route: 065
     Dates: start: 20231118, end: 20231127
  5. LEVOTHYROXINE [Concomitant]
     Active Substance: LEVOTHYROXINE\LEVOTHYROXINE SODIUM
     Indication: Product used for unknown indication
     Dosage: 50 MICRO GRAM 2 TABLET?AFTER BREAKFAST
     Route: 048
     Dates: start: 202306
  6. LEVOTHYROXINE [Concomitant]
     Active Substance: LEVOTHYROXINE\LEVOTHYROXINE SODIUM
     Dosage: 25 MICRO GRAM 1.5 TABLET?AFTER BREAKFAST
     Route: 048
     Dates: start: 202306

REACTIONS (4)
  - Hepatic function abnormal [Recovering/Resolving]
  - Acute kidney injury [Recovering/Resolving]
  - Pyrexia [Recovering/Resolving]
  - Inflammation [Recovering/Resolving]

NARRATIVE: CASE EVENT DATE: 20231118
